FAERS Safety Report 13087766 (Version 8)
Quarter: 2022Q4

REPORT INFORMATION
  Report Type: Spontaneous
  Country: US (occurrence: None)
  Receive Date: 20170105
  Receipt Date: 20221008
  Transmission Date: 20230113
  Serious: Yes (Hospitalization, Other)
  Sender: FDA-Public Use
  Company Number: 2017SE00122

PATIENT
  Age: 18575 Day
  Sex: Female
  Weight: 113.9 kg

DRUGS (77)
  1. NEXIUM [Suspect]
     Active Substance: ESOMEPRAZOLE MAGNESIUM
     Indication: Gastrooesophageal reflux disease
     Route: 048
     Dates: start: 200203, end: 201002
  2. NEXIUM [Suspect]
     Active Substance: ESOMEPRAZOLE MAGNESIUM
     Indication: Gastric pH decreased
     Route: 048
     Dates: start: 200203, end: 201002
  3. NEXIUM [Suspect]
     Active Substance: ESOMEPRAZOLE MAGNESIUM
     Indication: Gastrooesophageal reflux disease
     Dosage: 40.0MG UNKNOWN
     Route: 048
     Dates: start: 20070308, end: 201002
  4. NEXIUM [Suspect]
     Active Substance: ESOMEPRAZOLE MAGNESIUM
     Indication: Gastric pH decreased
     Dosage: 40.0MG UNKNOWN
     Route: 048
     Dates: start: 20070308, end: 201002
  5. NEXIUM [Suspect]
     Active Substance: ESOMEPRAZOLE MAGNESIUM
     Indication: Gastrooesophageal reflux disease
     Dosage: 40.0MG UNKNOWN
     Route: 048
     Dates: start: 20100317
  6. NEXIUM [Suspect]
     Active Substance: ESOMEPRAZOLE MAGNESIUM
     Indication: Gastric pH decreased
     Dosage: 40.0MG UNKNOWN
     Route: 048
     Dates: start: 20100317
  7. NEXIUM [Suspect]
     Active Substance: ESOMEPRAZOLE MAGNESIUM
     Indication: Gastrooesophageal reflux disease
     Dosage: 40.0MG UNKNOWN
     Route: 048
     Dates: start: 20140614
  8. NEXIUM [Suspect]
     Active Substance: ESOMEPRAZOLE MAGNESIUM
     Indication: Gastric pH decreased
     Dosage: 40.0MG UNKNOWN
     Route: 048
     Dates: start: 20140614
  9. NEXIUM 24HR [Suspect]
     Active Substance: ESOMEPRAZOLE MAGNESIUM
     Indication: Gastric pH decreased
     Route: 048
  10. PREVACID [Suspect]
     Active Substance: LANSOPRAZOLE
     Indication: Gastrooesophageal reflux disease
     Route: 065
     Dates: start: 2002, end: 2010
  11. PREVACID [Suspect]
     Active Substance: LANSOPRAZOLE
     Indication: Gastrooesophageal reflux disease
     Dosage: 30.0MG UNKNOWN
     Route: 065
     Dates: start: 2002, end: 2010
  12. PREVACID [Suspect]
     Active Substance: LANSOPRAZOLE
     Indication: Gastrooesophageal reflux disease
     Dosage: 30.0MG UNKNOWN
     Route: 065
     Dates: start: 20061011, end: 200707
  13. RANITIDINE [Concomitant]
     Active Substance: RANITIDINE
     Indication: Gastrooesophageal reflux disease
     Route: 048
     Dates: start: 2010
  14. RANITIDINE [Concomitant]
     Active Substance: RANITIDINE
     Indication: Gastrooesophageal reflux disease
     Dates: start: 2011
  15. RANITIDINE [Concomitant]
     Active Substance: RANITIDINE
     Indication: Gastrooesophageal reflux disease
     Dates: start: 2015
  16. PREDNISONE [Concomitant]
     Active Substance: PREDNISONE
  17. JANUVIA [Concomitant]
     Active Substance: SITAGLIPTIN PHOSPHATE
     Indication: Diabetes mellitus inadequate control
     Dates: start: 2010, end: 2015
  18. PEPCID [Concomitant]
     Active Substance: FAMOTIDINE
  19. SYNTHROID [Concomitant]
     Active Substance: LEVOTHYROXINE SODIUM
     Indication: Thyroid hormones decreased
     Route: 065
     Dates: start: 2000
  20. NORCO [Concomitant]
     Active Substance: ACETAMINOPHEN\HYDROCODONE BITARTRATE
     Indication: Analgesic therapy
     Dosage: ONE EVERY SIX HOURS
     Route: 065
     Dates: start: 2009
  21. NORCO [Concomitant]
     Active Substance: ACETAMINOPHEN\HYDROCODONE BITARTRATE
     Indication: Analgesic therapy
     Route: 065
     Dates: start: 2015
  22. COLACE [Concomitant]
     Active Substance: DOCUSATE SODIUM
  23. VISTARIL [Concomitant]
     Active Substance: HYDROXYZINE PAMOATE
     Route: 065
  24. PROVENTIL [Concomitant]
     Active Substance: ALBUTEROL
  25. PHENERGAN [Concomitant]
     Active Substance: PROMETHAZINE HYDROCHLORIDE
  26. PROZAC [Concomitant]
     Active Substance: FLUOXETINE HYDROCHLORIDE
  27. COUMADIN [Concomitant]
     Active Substance: WARFARIN SODIUM
     Dosage: 2.5 MG MONDAY THROUGH FRIDAY AND 5 MG ON SATURDAY AND SUNDAY
     Route: 065
  28. METFORMIN [Concomitant]
     Active Substance: METFORMIN HYDROCHLORIDE
     Indication: Diabetes mellitus inadequate control
     Route: 065
     Dates: start: 2009
  29. ALPRAZOLAM [Concomitant]
     Active Substance: ALPRAZOLAM
     Indication: Anxiety
     Route: 065
     Dates: start: 2009
  30. LIPITOR [Concomitant]
     Active Substance: ATORVASTATIN CALCIUM
     Indication: Blood cholesterol
     Route: 065
     Dates: start: 2016
  31. ZOLOFT [Concomitant]
     Active Substance: SERTRALINE HYDROCHLORIDE
     Indication: Anxiety
     Route: 065
     Dates: start: 2015
  32. DETROL LA [Concomitant]
     Active Substance: TOLTERODINE TARTRATE
     Route: 065
  33. LASIX [Concomitant]
     Active Substance: FUROSEMIDE
     Route: 065
  34. ZOCOR [Concomitant]
     Active Substance: SIMVASTATIN
     Route: 065
  35. VESICARE [Concomitant]
     Active Substance: SOLIFENACIN SUCCINATE
  36. COMBIVENT [Concomitant]
     Active Substance: ALBUTEROL SULFATE\IPRATROPIUM BROMIDE
  37. LACTASE [Concomitant]
     Active Substance: LACTASE
  38. BEANO [Concomitant]
     Active Substance: ASPERGILLUS NIGER .ALPHA.-GALACTOSIDASE
  39. ATENOLOL [Concomitant]
     Active Substance: ATENOLOL
  40. LISINOPRIL [Concomitant]
     Active Substance: LISINOPRIL
  41. ZOLPIDEM TARTRATE [Concomitant]
     Active Substance: ZOLPIDEM TARTRATE
  42. TYGACIL [Concomitant]
     Active Substance: TIGECYCLINE
  43. NOVOLOG [Concomitant]
     Active Substance: INSULIN ASPART
  44. LOVENOX [Concomitant]
     Active Substance: ENOXAPARIN SODIUM
  45. DARVOCET-N 100 [Concomitant]
     Active Substance: ACETAMINOPHEN\PROPOXYPHENE NAPSYLATE
  46. REGLAN [Concomitant]
     Active Substance: METOCLOPRAMIDE HYDROCHLORIDE
  47. PROTONIX [Concomitant]
     Active Substance: PANTOPRAZOLE SODIUM
     Route: 065
     Dates: start: 20100330
  48. SODIUM CHLORIDE [Concomitant]
     Active Substance: SODIUM CHLORIDE
  49. DOXYCYCLINE [Concomitant]
     Active Substance: DOXYCYCLINE
  50. MOMETASONE FUROATE [Concomitant]
     Active Substance: MOMETASONE FUROATE
  51. DIETARY SUPPLEMENT\HERBALS\MILK THISTLE [Concomitant]
     Active Substance: DIETARY SUPPLEMENT\HERBALS\MILK THISTLE
  52. FERROUS SULFATE ANHYDROUS [Concomitant]
     Active Substance: FERROUS SULFATE ANHYDROUS
  53. MODERNA COVID-19 VACCINE [Concomitant]
     Active Substance: ELASOMERAN
     Dates: start: 20210403
  54. ALLOPURINOL [Concomitant]
     Active Substance: ALLOPURINOL
  55. NARCAN [Concomitant]
     Active Substance: NALOXONE HYDROCHLORIDE
  56. MYRBETRIQ [Concomitant]
     Active Substance: MIRABEGRON
  57. LUBIPROSTONE [Concomitant]
     Active Substance: LUBIPROSTONE
  58. FLONASE [Concomitant]
     Active Substance: FLUTICASONE PROPIONATE
  59. ELIQUIS [Concomitant]
     Active Substance: APIXABAN
  60. NEURONTIN [Concomitant]
     Active Substance: GABAPENTIN
  61. REGADENOSON [Concomitant]
     Active Substance: REGADENOSON
     Dates: start: 20220316
  62. GLIPIZIDE [Concomitant]
     Active Substance: GLIPIZIDE
  63. SENNA [Concomitant]
     Active Substance: SENNA LEAF\SENNOSIDES\SENNOSIDES A AND B
  64. INDOCIN [Concomitant]
     Active Substance: INDOMETHACIN
  65. ZANTAC [Concomitant]
     Active Substance: RANITIDINE HYDROCHLORIDE
     Indication: Gastrooesophageal reflux disease
     Dates: start: 2015
  66. ZANTAC [Concomitant]
     Active Substance: RANITIDINE HYDROCHLORIDE
     Indication: Gastrooesophageal reflux disease
     Dates: start: 2011
  67. ALLEGRA [Concomitant]
     Active Substance: FEXOFENADINE HYDROCHLORIDE
  68. PREMARIN [Concomitant]
     Active Substance: ESTROGENS, CONJUGATED
  69. MOTRIN [Concomitant]
     Active Substance: IBUPROFEN
  70. AMBIEN [Concomitant]
     Active Substance: ZOLPIDEM TARTRATE
  71. XANAX [Concomitant]
     Active Substance: ALPRAZOLAM
  72. NITROGLYCERIN [Concomitant]
     Active Substance: NITROGLYCERIN
  73. AZITHROMYCIN [Concomitant]
     Active Substance: AZITHROMYCIN
  74. VITAMIN D [Concomitant]
     Active Substance: VITAMIN D NOS
  75. CIPROFLOXACIN [Concomitant]
     Active Substance: CIPROFLOXACIN
  76. XYZAL [Concomitant]
     Active Substance: LEVOCETIRIZINE DIHYDROCHLORIDE
  77. ESTRADIOL [Concomitant]
     Active Substance: ESTRADIOL

REACTIONS (9)
  - Acute kidney injury [Recovered/Resolved]
  - End stage renal disease [Unknown]
  - Chronic kidney disease [Not Recovered/Not Resolved]
  - Renal failure [Unknown]
  - Nephrogenic anaemia [Unknown]
  - Tubulointerstitial nephritis [Not Recovered/Not Resolved]
  - Depression [Unknown]
  - Anxiety [Unknown]
  - Injury [Unknown]

NARRATIVE: CASE EVENT DATE: 20100329
